FAERS Safety Report 10461991 (Version 1)
Quarter: 2014Q3

REPORT INFORMATION
  Report Type: Spontaneous
  Country: FR (occurrence: FR)
  Receive Date: 20140918
  Receipt Date: 20140918
  Transmission Date: 20150326
  Serious: Yes (Other)
  Sender: FDA-Public Use
  Company Number: FR-PERRIGO-14FR009004

PATIENT
  Age: 13 Day
  Sex: Female

DRUGS (2)
  1. DEXTROPROPOXYPHENE [Suspect]
     Active Substance: PROPOXYPHENE HYDROCHLORIDE
     Indication: EXPOSURE DURING BREAST FEEDING
     Dosage: UNK, UNK
     Route: 048
  2. ACETAMINOPHEN 650MG ER 544 [Suspect]
     Active Substance: ACETAMINOPHEN
     Indication: EXPOSURE DURING BREAST FEEDING
     Dosage: UNK, UNK
     Route: 048

REACTIONS (3)
  - Hypotonia [Recovered/Resolved]
  - Exposure during breast feeding [Recovered/Resolved]
  - Weight decreased [Recovered/Resolved]
